FAERS Safety Report 5007607-1 (Version None)
Quarter: 2006Q2

REPORT INFORMATION
  Report Type: 
  Country: None (occurrence: None)
  Receive Date: 20060522
  Receipt Date: 20060510
  Transmission Date: 20061013
  Serious: Yes (Life-Threatening, Hospitalization)
  Sender: FDA-Public Use
  Company Number: JP-JNJFOC-20060200927

PATIENT
  Sex: Male
  Weight: 75.1 kg

DRUGS (9)
  1. REMICADE [Suspect]
     Indication: RHEUMATOID ARTHRITIS
     Route: 042
  2. PREDNISOLONE [Suspect]
     Indication: RHEUMATOID ARTHRITIS
     Route: 048
  3. RHEUMATREX [Suspect]
     Indication: RHEUMATOID ARTHRITIS
     Route: 048
  4. GASTER [Concomitant]
     Indication: GASTROINTESTINAL DISORDER THERAPY
     Route: 048
  5. FOLIAMIN [Concomitant]
     Route: 048
  6. BENET [Concomitant]
     Indication: PROPHYLAXIS
     Route: 048
  7. VOLTAREN [Concomitant]
     Indication: RHEUMATOID ARTHRITIS
     Route: 048
  8. SELBEX [Concomitant]
     Indication: GASTROINTESTINAL DISORDER THERAPY
     Route: 048
  9. ISCOTIN [Concomitant]
     Route: 048

REACTIONS (26)
  - ACUTE RESPIRATORY DISTRESS SYNDROME [None]
  - ALANINE AMINOTRANSFERASE INCREASED [None]
  - ASCITES [None]
  - ASPARTATE AMINOTRANSFERASE INCREASED [None]
  - BLOOD CHLORIDE INCREASED [None]
  - BLOOD POTASSIUM INCREASED [None]
  - BLOOD SODIUM INCREASED [None]
  - BLOOD URINE PRESENT [None]
  - BONE MARROW FAILURE [None]
  - CHORIORETINOPATHY [None]
  - DEPRESSED LEVEL OF CONSCIOUSNESS [None]
  - DRUG HYPERSENSITIVITY [None]
  - GAMMA-GLUTAMYLTRANSFERASE INCREASED [None]
  - HEPATIC FUNCTION ABNORMAL [None]
  - HERPES ZOSTER [None]
  - HYPERTHERMIA [None]
  - IMMUNOSUPPRESSION [None]
  - METHICILLIN-RESISTANT STAPHYLOCOCCAL AUREUS TEST [None]
  - MULTI-ORGAN FAILURE [None]
  - NEUROPATHY [None]
  - PHARYNGOLARYNGEAL PAIN [None]
  - PNEUMONIA LEGIONELLA [None]
  - PROTEIN URINE PRESENT [None]
  - SCROTAL OEDEMA [None]
  - URINARY CASTS [None]
  - URINE KETONE BODY PRESENT [None]
